FAERS Safety Report 14753315 (Version 1)
Quarter: 2018Q2

REPORT INFORMATION
  Report Type: Spontaneous
  Country: US (occurrence: US)
  Receive Date: 20180412
  Receipt Date: 20180412
  Transmission Date: 20180711
  Serious: No
  Sender: FDA-Public Use
  Company Number: US-ALLERGAN-1757850US

PATIENT
  Age: 55 Year
  Sex: Female

DRUGS (1)
  1. FEMRING [Suspect]
     Active Substance: ESTRADIOL ACETATE
     Indication: HYSTERECTOMY
     Dosage: 0.10 MG, QD, EVERY 3 MONTHS
     Route: 067
     Dates: start: 20170919

REACTIONS (7)
  - Incorrect drug administration duration [Unknown]
  - Hyperhidrosis [Recovered/Resolved]
  - Drug ineffective for unapproved indication [Unknown]
  - Off label use [Unknown]
  - Feeling abnormal [Recovered/Resolved]
  - Feeling hot [Recovered/Resolved]
  - Headache [Recovered/Resolved]
